FAERS Safety Report 15439765 (Version 2)
Quarter: 2019Q1

REPORT INFORMATION
  Report Type: Report from Study
  Country: US (occurrence: US)
  Receive Date: 20180928
  Receipt Date: 20190212
  Transmission Date: 20190417
  Serious: Yes (Other)
  Sender: FDA-Public Use
  Company Number: CA-ASTRAZENECA-2018SF24369

PATIENT
  Age: 60 Year
  Sex: Female

DRUGS (1)
  1. OSIMERTINIB. [Suspect]
     Active Substance: OSIMERTINIB
     Indication: NON-SMALL CELL LUNG CANCER
     Route: 048

REACTIONS (7)
  - Fatigue [Unknown]
  - Leukopenia [Unknown]
  - Drug resistance [Unknown]
  - Hypertension [Unknown]
  - Acquired gene mutation [Unknown]
  - Transaminases increased [Unknown]
  - Dry mouth [Unknown]
